FAERS Safety Report 17984296 (Version 1)
Quarter: 2020Q3

REPORT INFORMATION
  Report Type: Spontaneous
  Country: US (occurrence: US)
  Receive Date: 20200706
  Receipt Date: 20200706
  Transmission Date: 20201103
  Serious: Yes (Other)
  Sender: FDA-Public Use
  Company Number: None

PATIENT
  Age: 86 Year
  Sex: Male
  Weight: 45 kg

DRUGS (6)
  1. ADVAIR HFA [Concomitant]
     Active Substance: FLUTICASONE PROPIONATE\SALMETEROL XINAFOATE
  2. ABIRATERONE. [Suspect]
     Active Substance: ABIRATERONE ACETATE
     Indication: PROSTATE CANCER
     Route: 048
     Dates: start: 20190724
  3. PREDNISONE. [Concomitant]
     Active Substance: PREDNISONE
  4. ALEVE [Concomitant]
     Active Substance: NAPROXEN SODIUM
  5. BICALUTAMIDE. [Concomitant]
     Active Substance: BICALUTAMIDE
  6. MULTI FOR HIM 50+ [Concomitant]

REACTIONS (2)
  - Fatigue [None]
  - Hypersomnia [None]

NARRATIVE: CASE EVENT DATE: 20200706
